FAERS Safety Report 9478579 (Version 1)
Quarter: 2013Q3

REPORT INFORMATION
  Report Type: Spontaneous
  Country: US (occurrence: US)
  Receive Date: 20130827
  Receipt Date: 20130827
  Transmission Date: 20140515
  Serious: Yes (Other)
  Sender: FDA-Public Use
  Company Number: US-ABBOTT-13P-163-1137365-00

PATIENT
  Age: 69 Year
  Sex: Female
  Weight: 55.39 kg

DRUGS (8)
  1. SYNTHROID [Suspect]
     Indication: HYPOTHYROIDISM
     Route: 048
     Dates: start: 20130620
  2. SYNTHROID [Suspect]
     Route: 048
     Dates: end: 20130620
  3. ACTIGALL [Concomitant]
     Indication: BILIARY CIRRHOSIS PRIMARY
  4. DIOVAN [Concomitant]
     Indication: HYPERTENSION
  5. ATENOLOL [Concomitant]
     Indication: HYPERTENSION
  6. DILAUDID [Concomitant]
     Indication: ABDOMINAL PAIN UPPER
  7. DIAZEPAM [Concomitant]
     Indication: INSOMNIA
  8. DIAZEPAM [Concomitant]
     Indication: STRESS

REACTIONS (10)
  - Dizziness [Not Recovered/Not Resolved]
  - Tremor [Not Recovered/Not Resolved]
  - Nausea [Not Recovered/Not Resolved]
  - Constipation [Not Recovered/Not Resolved]
  - Fatigue [Not Recovered/Not Resolved]
  - Abdominal pain upper [Not Recovered/Not Resolved]
  - Lethargy [Not Recovered/Not Resolved]
  - Fatigue [Not Recovered/Not Resolved]
  - Headache [Not Recovered/Not Resolved]
  - Chest pain [Not Recovered/Not Resolved]
